FAERS Safety Report 6317627-2 (Version None)
Quarter: 2009Q3

REPORT INFORMATION
  Report Type: 
  Country: None (occurrence: None)
  Receive Date: 20090821
  Receipt Date: 20090728
  Transmission Date: 20100115
  Serious: Yes (Hospitalization)
  Sender: FDA-Public Use
  Company Number: IN-BRISTOL-MYERS SQUIBB COMPANY-14747679

PATIENT
  Age: 32 Year
  Sex: Male

DRUGS (11)
  1. EFAVIRENZ [Suspect]
     Indication: HIV INFECTION
     Dosage: THERAPY DURATION-281,INTERRUPTED ON 28JUL09
     Route: 065
     Dates: start: 20081021
  2. COMBIVIR [Suspect]
     Indication: HIV INFECTION
     Dosage: INTERRUPTED ON 28JUL09,THERAPY DURATION-281
     Route: 065
     Dates: start: 20081021
  3. REYATAZ [Concomitant]
  4. VIDEX [Concomitant]
  5. TRUVADA [Concomitant]
  6. VIRAMUNE [Concomitant]
  7. VIREAD [Concomitant]
  8. EPIVER [Concomitant]
  9. RETROVIR [Concomitant]
  10. ZERIT [Concomitant]
  11. KALETRA [Concomitant]

REACTIONS (1)
  - HYPERLACTACIDAEMIA [None]
